FAERS Safety Report 5961222-1 (Version None)
Quarter: 2008Q4

REPORT INFORMATION
  Report Type: 
  Country: None (occurrence: None)
  Receive Date: 20081121
  Receipt Date: 20081119
  Transmission Date: 20090506
  Serious: Yes (Other)
  Sender: FDA-Public Use
  Company Number: US-ELI_LILLY_AND_COMPANY-US200811004539

PATIENT
  Age: 90 Year
  Sex: Female

DRUGS (4)
  1. HUMULIN N [Suspect]
     Dosage: 11 U, EACH MORNING
     Dates: start: 19980101
  2. HUMULIN N [Suspect]
     Dosage: 3 U, EACH EVENING
  3. HUMULIN R [Suspect]
     Dosage: 5 U, EACH MORNING
  4. METFORMIN HCL [Concomitant]

REACTIONS (3)
  - ANEURYSM [None]
  - MACULAR DEGENERATION [None]
  - VISUAL ACUITY REDUCED [None]
